FAERS Safety Report 11109363 (Version 1)
Quarter: 2015Q2

REPORT INFORMATION
  Report Type: Spontaneous
  Country: US (occurrence: None)
  Receive Date: 20150511
  Receipt Date: 20150511
  Transmission Date: 20150821
  Serious: Yes (Other)
  Sender: FDA-Public Use
  Company Number: ADR-2015-00901

PATIENT
  Sex: Female

DRUGS (5)
  1. CLONIDINE 500 MG/ML [Suspect]
     Active Substance: CLONIDINE
  2. METACARPAL [Suspect]
     Active Substance: UNSPECIFIED INGREDIENT
  3. BACLOFEN INTRATHECAL [Suspect]
     Active Substance: BACLOFEN
     Indication: POST LAMINECTOMY SYNDROME
     Dosage: 2260.0 MGG/DAY
  4. FENTANYL. [Suspect]
     Active Substance: FENTANYL
  5. ROBAXIN [Suspect]
     Active Substance: METHOCARBAMOL

REACTIONS (2)
  - Altered state of consciousness [None]
  - Device kink [None]
